FAERS Safety Report 8474734-6 (Version None)
Quarter: 2012Q2

REPORT INFORMATION
  Report Type: 
  Country: None (occurrence: None)
  Receive Date: 20120628
  Receipt Date: 20120326
  Transmission Date: 20120825
  Serious: Yes (Hospitalization)
  Sender: FDA-Public Use
  Company Number: CA-SHIRE-ALL1-2012-00334

PATIENT
  Age: 53 Year
  Sex: Female
  Weight: 40.816 kg

DRUGS (8)
  1. PREVACID [Concomitant]
     Indication: PRODUCT USED FOR UNKNOWN INDICATION
     Dosage: 30 MG, 1X/DAY:QD
     Route: 065
  2. CALCITRIOL [Concomitant]
     Indication: PRODUCT USED FOR UNKNOWN INDICATION
     Dosage: 0.25 ?G, 1X/WEEK
     Route: 065
  3. COREG [Concomitant]
     Indication: PRODUCT USED FOR UNKNOWN INDICATION
     Dosage: 3.125 MG, 2X/DAY:BID
     Route: 065
  4. SYNTHROID [Concomitant]
     Indication: PRODUCT USED FOR UNKNOWN INDICATION
     Dosage: 0.025 MG, EVERY 2 DAYS
     Route: 065
  5. FOSRENOL [Suspect]
     Dosage: 1000 MG, 3X/DAY:TID
     Route: 048
     Dates: end: 20111101
  6. ATORVASTATIN [Concomitant]
     Indication: PRODUCT USED FOR UNKNOWN INDICATION
     Dosage: 10 MG, 1X/DAY:QD
     Route: 048
  7. FOSRENOL [Suspect]
     Dosage: 250 MG, 3X/DAY:TID
     Route: 048
     Dates: start: 20100301, end: 20111101
  8. FOSRENOL [Suspect]
     Indication: HYPERPHOSPHATAEMIA
     Dosage: 500 MG, 2X/DAY:BID
     Route: 048
     Dates: end: 20111101

REACTIONS (2)
  - BEZOAR [None]
  - INTESTINAL OBSTRUCTION [None]
